FAERS Safety Report 7839849-1 (Version None)
Quarter: 2011Q4

REPORT INFORMATION
  Report Type: 
  Country: None (occurrence: None)
  Receive Date: 20111025
  Receipt Date: 20111017
  Transmission Date: 20120403
  Serious: Yes (Hospitalization)
  Sender: FDA-Public Use
  Company Number: US-BIOGENIDEC-2011BI001593

PATIENT
  Age: 54 Year
  Sex: Female

DRUGS (4)
  1. BACLOFEN [Concomitant]
     Route: 048
  2. CETIRIZINE HCL [Concomitant]
     Route: 048
  3. TYSABRI [Suspect]
     Indication: MULTIPLE SCLEROSIS
     Route: 042
     Dates: start: 20070425
  4. VITAMIN B COMPLEX CAP [Concomitant]

REACTIONS (1)
  - SPLENOMEGALY [None]
